FAERS Safety Report 8239544-3 (Version None)
Quarter: 2012Q1

REPORT INFORMATION
  Report Type: 
  Country: None (occurrence: None)
  Receive Date: 20120309
  Receipt Date: 20110210
  Transmission Date: 20120608
  Serious: Yes (Hospitalization)
  Sender: FDA-Public Use
  Company Number: PHHY2010US71669

PATIENT
  Age: 50 Year
  Sex: Male

DRUGS (21)
  1. EXTAVIA [Suspect]
     Indication: MULTIPLE SCLEROSIS
     Dosage: 0.125 MG, QOD, SUBCUTANEOUS, 0.25 MG, QOD, SUBCUTANEOUS
     Route: 058
     Dates: start: 20100928
  2. EXTAVIA [Suspect]
     Indication: MULTIPLE SCLEROSIS
     Dosage: 0.125 MG, QOD, SUBCUTANEOUS, 0.25 MG, QOD, SUBCUTANEOUS
     Route: 058
     Dates: start: 20100923
  3. TAMSULOSIN HCL [Concomitant]
  4. GABAPENTIN [Concomitant]
  5. ADVAIR (FLUTICASONE PROPIONATE, SALMETEROL XINAFOATE) INHALER [Concomitant]
  6. BUTALBITAL (BUTABITAL) [Concomitant]
  7. DILTIAZEM [Concomitant]
  8. ACTOS (PIOGLITAZONE, PIOGLITAZONE HYDROCHLORIDE) [Concomitant]
  9. OMEPRAZOLE [Concomitant]
  10. SINGULAIR [Concomitant]
  11. GLIPIZIDE [Concomitant]
  12. BUPROPION HCL [Concomitant]
  13. PLAVIX [Concomitant]
  14. ISOSORBIDE (ISOSORBIDE) [Concomitant]
  15. METFORMIN HCL [Concomitant]
  16. FOLIC ACID [Concomitant]
  17. SPIRIVA [Concomitant]
  18. INSULIN (INSULIN) [Concomitant]
  19. MAGNESIUM OXIDE (MAGNESIUM OXIDE) [Concomitant]
  20. HYDROCODONE BITARTRATE [Concomitant]
  21. CYCLOBENZAPRINE [Concomitant]

REACTIONS (5)
  - WEIGHT INCREASED [None]
  - HEADACHE [None]
  - CHEST PAIN [None]
  - MALAISE [None]
  - COGNITIVE DISORDER [None]
